FAERS Safety Report 9249202 (Version 2)
Quarter: 2013Q2

REPORT INFORMATION
  Report Type: Report from Study
  Country: NO (occurrence: NO)
  Receive Date: 20130423
  Receipt Date: 20130520
  Transmission Date: 20140414
  Serious: Yes (Death, Other)
  Sender: FDA-Public Use
  Company Number: NO-BRISTOL-MYERS SQUIBB COMPANY-18808303

PATIENT
  Age: 78 Year
  Sex: Female

DRUGS (9)
  1. APIXABAN [Suspect]
     Indication: THROMBOSIS PROPHYLAXIS
     Route: 048
     Dates: start: 20110829, end: 20130414
  2. B COMPLEX 100 [Concomitant]
     Dosage: 1DF:1 TABS
     Dates: end: 20130414
  3. ESCITALOPRAM [Concomitant]
     Dates: end: 20130414
  4. METOPROLOL [Concomitant]
     Dates: end: 20130414
  5. OXAZEPAM [Concomitant]
     Dates: end: 20130413
  6. LEVOTHYROXIN [Concomitant]
     Dates: end: 20130414
  7. TELMISARTAN [Concomitant]
     Dates: end: 20130414
  8. BUMETANIDE [Concomitant]
     Dates: end: 20130414
  9. RISPERIDONE [Concomitant]
     Indication: PSYCHOTIC DISORDER
     Dates: end: 20130414

REACTIONS (1)
  - Cerebrovascular accident [Fatal]
